FAERS Safety Report 13063597 (Version 1)
Quarter: 2016Q4

REPORT INFORMATION
  Report Type: Spontaneous
  Country: GB (occurrence: GB)
  Receive Date: 20161227
  Receipt Date: 20161227
  Transmission Date: 20170207
  Serious: Yes (Other)
  Sender: FDA-Public Use
  Company Number: GB-TEVA-721693ACC

PATIENT
  Age: 57 Year
  Sex: Female
  Weight: 112 kg

DRUGS (12)
  1. CLARITHROMYCIN. [Concomitant]
     Active Substance: CLARITHROMYCIN
     Dosage: 2 DOSAGE FORMS DAILY;
     Dates: start: 20160908, end: 20160915
  2. FOSTAIR [Concomitant]
     Active Substance: BECLOMETHASONE\FORMOTEROL
     Dosage: 2 DOSAGE FORMS DAILY;
     Route: 055
     Dates: start: 20160308
  3. TRIMETHOPRIM. [Concomitant]
     Active Substance: TRIMETHOPRIM
     Dosage: 2 DOSAGE FORMS DAILY;
     Dates: start: 20161124, end: 20161129
  4. LEVOTHYROXINE. [Concomitant]
     Active Substance: LEVOTHYROXINE
     Dosage: 1 DOSAGE FORMS DAILY;
     Dates: start: 20160203
  5. HYPROMELLOSE [Concomitant]
     Active Substance: HYPROMELLOSES
     Dates: start: 20140131
  6. METFORMIN [Concomitant]
     Active Substance: METFORMIN HYDROCHLORIDE
     Dosage: 1 DOSAGE FORMS DAILY;
     Dates: start: 20161031, end: 20161128
  7. LANSOPRAZOLE. [Concomitant]
     Active Substance: LANSOPRAZOLE
     Dosage: 1 DOSAGE FORMS DAILY;
     Dates: start: 20160915, end: 20161013
  8. CEFALEXIN [Concomitant]
     Active Substance: CEPHALEXIN
     Dosage: 30 ML DAILY;
     Dates: start: 20160909, end: 20160916
  9. DOXYCYCLINE. [Concomitant]
     Active Substance: DOXYCYCLINE
     Dosage: TWO NOW THEN ONE DAILY.
     Dates: start: 20161114, end: 20161121
  10. NITROFURANTOIN. [Suspect]
     Active Substance: NITROFURANTOIN
     Dates: start: 20161202
  11. ESTRADIOL. [Concomitant]
     Active Substance: ESTRADIOL
     Dosage: AS DIRECTED.
     Dates: start: 20161124, end: 20161125
  12. FUCIBET [Concomitant]
     Dosage: 2 DOSAGE FORMS DAILY;
     Route: 061
     Dates: start: 20160923, end: 20160924

REACTIONS (4)
  - Dry mouth [Not Recovered/Not Resolved]
  - Arthralgia [Unknown]
  - Condition aggravated [Unknown]
  - Sjogren^s syndrome [Unknown]

NARRATIVE: CASE EVENT DATE: 20161202
